FAERS Safety Report 15377139 (Version 2)
Quarter: 2018Q4

REPORT INFORMATION
  Report Type: Spontaneous
  Country: US (occurrence: US)
  Receive Date: 20180913
  Receipt Date: 20181207
  Transmission Date: 20190204
  Serious: No
  Sender: FDA-Public Use
  Company Number: US-ASTRAZENECA-2018SF10099

PATIENT
  Sex: Male

DRUGS (2)
  1. BYDUREON BCISE [Suspect]
     Active Substance: EXENATIDE
     Dosage: USE 1 PEN WEEKLY
     Route: 058
     Dates: start: 201802
  2. BYDUREON [Suspect]
     Active Substance: EXENATIDE
     Route: 058
     Dates: start: 201609

REACTIONS (3)
  - Injection site extravasation [Unknown]
  - Device defective [Unknown]
  - Underdose [Not Recovered/Not Resolved]
